FAERS Safety Report 9085213 (Version 1)
Quarter: 2013Q1

REPORT INFORMATION
  Report Type: Report from Study
  Country: US (occurrence: US)
  Receive Date: 20130131
  Receipt Date: 20130131
  Transmission Date: 20140127
  Serious: No
  Sender: FDA-Public Use
  Company Number: US-ABBOTT-12P-163-0989879-00

PATIENT
  Age: 66 Year
  Sex: Male

DRUGS (3)
  1. HUMIRA [Suspect]
     Indication: RHEUMATOID ARTHRITIS
     Dates: start: 20120705, end: 20120927
  2. CELEBREX [Concomitant]
     Indication: PAIN
     Dosage: 1 IN THE AM; 1 IN THE PM
  3. SOMETHING THAT BEGINS WITH SP [Concomitant]
     Indication: ARTHRITIS

REACTIONS (1)
  - Drug ineffective [Recovering/Resolving]
